FAERS Safety Report 7610589-7 (Version None)
Quarter: 2011Q3

REPORT INFORMATION
  Report Type: 
  Country: None (occurrence: None)
  Receive Date: 20110715
  Receipt Date: 20110713
  Transmission Date: 20111222
  Serious: Yes (Death, Other)
  Sender: FDA-Public Use
  Company Number: US-AMGEN-USASP2011027584

PATIENT
  Sex: Male
  Weight: 57.3 kg

DRUGS (6)
  1. DEXAMETHASONE [Concomitant]
     Dosage: 4 MG, QID
     Route: 048
     Dates: start: 20100610, end: 20110520
  2. KEPPRA [Concomitant]
     Dosage: 150 MG, BID
     Route: 048
     Dates: start: 20100610, end: 20110520
  3. IMATINIB MESYLATE [Concomitant]
     Dosage: 400 MG, QD
     Route: 048
     Dates: start: 20110323, end: 20110520
  4. HYDROXYUREA [Concomitant]
     Dosage: 500 MG, UNK
     Route: 048
     Dates: start: 20110323, end: 20110520
  5. AVASTIN [Concomitant]
     Dosage: 575 MG, Q2WK
     Route: 042
     Dates: start: 20100623, end: 20110406
  6. NPLATE [Suspect]
     Indication: IDIOPATHIC THROMBOCYTOPENIC PURPURA
     Dosage: 60 A?G, UNK
     Dates: start: 20110413, end: 20110504

REACTIONS (1)
  - GLIOBLASTOMA MULTIFORME [None]
